FAERS Safety Report 9926804 (Version 1)
Quarter: 2014Q1

REPORT INFORMATION
  Report Type: Spontaneous
  Country: US (occurrence: US)
  Receive Date: 20140226
  Receipt Date: 20140226
  Transmission Date: 20141002
  Serious: Yes (Other)
  Sender: FDA-Public Use
  Company Number: US-AMGEN-USASP2013079668

PATIENT
  Age: 36 Year
  Sex: Female
  Weight: 112.47 kg

DRUGS (1)
  1. ENBREL [Suspect]
     Indication: PSORIASIS
     Dosage: 50 MG, QWK
     Route: 058
     Dates: start: 20071205, end: 20090201

REACTIONS (2)
  - Cellulitis [Unknown]
  - Drug ineffective [Unknown]
